FAERS Safety Report 6521447-3 (Version None)
Quarter: 2009Q4

REPORT INFORMATION
  Report Type: 
  Country: None (occurrence: None)
  Receive Date: 20091230
  Receipt Date: 20091222
  Transmission Date: 20100525
  Serious: Yes (Disabling)
  Sender: FDA-Public Use
  Company Number: CA-ASTRAZENECA-2009SE29132

PATIENT
  Age: 960 Month
  Sex: Female
  Weight: 69.9 kg

DRUGS (7)
  1. CRESTOR [Suspect]
     Indication: HYPERCHOLESTEROLAEMIA
     Route: 048
     Dates: start: 20080801, end: 20090101
  2. ELTROXIN [Concomitant]
     Indication: THYROID DISORDER
     Route: 048
     Dates: start: 20040101
  3. FLOVENT [Concomitant]
     Indication: ASTHMA
     Route: 055
     Dates: start: 20060101
  4. RAMIPRIL [Concomitant]
     Indication: CARDIAC DISORDER
     Route: 048
     Dates: start: 20070101
  5. ASPIRIN [Concomitant]
     Indication: CARDIAC DISORDER
     Route: 048
  6. BISOPROLOL [Concomitant]
     Indication: HYPERTENSION
     Route: 048
     Dates: start: 20090801
  7. AVAMYS [Concomitant]
     Indication: SINUS DISORDER
     Route: 055
     Dates: start: 20091001

REACTIONS (1)
  - MUSCLE SPASMS [None]
